FAERS Safety Report 9294115 (Version 1)
Quarter: 2013Q1

REPORT INFORMATION
  Report Type: Spontaneous
  Country: US (occurrence: None)
  Receive Date: 20121218
  Receipt Date: 20121218
  Transmission Date: 20140127
  Serious: Yes (Other)
  Sender: FDA-Public Use
  Company Number: PHEH2011US011992

PATIENT
  Age: 51 Year
  Sex: Female

DRUGS (1)
  1. FEMARA [Suspect]
     Indication: BREAST CANCER METASTATIC
     Dates: start: 200804

REACTIONS (4)
  - Neoplasm [None]
  - Malignant neoplasm progression [None]
  - Metastases to central nervous system [None]
  - Tumour marker increased [None]
